FAERS Safety Report 11890545 (Version 1)
Quarter: 2016Q1

REPORT INFORMATION
  Report Type: Spontaneous
  Country: PL (occurrence: PL)
  Receive Date: 20160105
  Receipt Date: 20160105
  Transmission Date: 20160526
  Serious: Yes (Disabling)
  Sender: FDA-Public Use
  Company Number: PL-MYLANLABS-2015M1047906

PATIENT

DRUGS (3)
  1. MYCOPHENOLATE MOFETIL. [Suspect]
     Active Substance: MYCOPHENOLATE MOFETIL
     Indication: IMMUNOSUPPRESSANT DRUG THERAPY
     Dosage: 2000 MG/DAY
     Route: 065
  2. METHYLPREDNISOLONE. [Suspect]
     Active Substance: METHYLPREDNISOLONE
     Indication: IMMUNOSUPPRESSANT DRUG THERAPY
     Dosage: FOR A TOTAL DOSE OF 3.0 G
     Route: 065
  3. CICLOSPORIN [Suspect]
     Active Substance: CYCLOSPORINE
     Indication: IMMUNOSUPPRESSANT DRUG THERAPY
     Dosage: TROUGH LEVELS 250MICG/L FOR FIRST MONTH; THEN TAPERED TO MAINTENANCE LEVEL OF 100-125MICG/L
     Route: 065

REACTIONS (3)
  - Necrotising herpetic retinopathy [Not Recovered/Not Resolved]
  - Nephropathy toxic [Unknown]
  - Polyomavirus-associated nephropathy [Unknown]
